FAERS Safety Report 6248612-7 (Version None)
Quarter: 2009Q2

REPORT INFORMATION
  Report Type: 
  Country: None (occurrence: None)
  Receive Date: 20090624
  Receipt Date: 20090624
  Transmission Date: 20091009
  Serious: Yes (Hospitalization)
  Sender: FDA-Public Use
  Company Number: None

PATIENT
  Age: 41 Year
  Sex: Female
  Weight: 45.5 kg

DRUGS (7)
  1. PHENYTOIN [Suspect]
     Indication: CONVULSION
     Dosage: 100 MG TID PO (HOME)
     Route: 048
  2. DICYCLOMINE [Concomitant]
  3. OXYCODONE [Concomitant]
  4. VALTREX [Concomitant]
  5. FENTANYL [Concomitant]
  6. CLONAZEPAM [Concomitant]
  7. PROMETHAZINE [Concomitant]

REACTIONS (8)
  - ABDOMINAL PAIN [None]
  - ATAXIA [None]
  - DRUG DOSE OMISSION [None]
  - HEADACHE [None]
  - HYPERHIDROSIS [None]
  - HYPOAESTHESIA [None]
  - TINNITUS [None]
  - VISUAL IMPAIRMENT [None]
